FAERS Safety Report 23146999 (Version 1)
Quarter: 2023Q4

REPORT INFORMATION
  Report Type: Other
  Country: PE (occurrence: PE)
  Receive Date: 20231106
  Receipt Date: 20231106
  Transmission Date: 20240110
  Serious: Yes (Hospitalization, Other)
  Sender: FDA-Public Use
  Company Number: PE-DEXPHARM-20232714

PATIENT
  Age: 1 Day
  Sex: Female

DRUGS (5)
  1. DEXAMETHASONE [Suspect]
     Active Substance: DEXAMETHASONE
     Dosage: THE MOTHER RECEIVED DEXAMETHASONE  FOR PULMONARY MATURATION.
     Route: 050
  2. MAGNESIUM SULFATE [Concomitant]
     Active Substance: MAGNESIUM SULFATE\MAGNESIUM SULFATE HEPTAHYDRATE
     Route: 050
  3. NIFEDIPINE [Concomitant]
     Active Substance: NIFEDIPINE
     Route: 050
  4. MEROPENEM [Concomitant]
     Active Substance: MEROPENEM
  5. VANCOMYCIN [Concomitant]
     Active Substance: VANCOMYCIN

REACTIONS (2)
  - Gastric perforation [Recovered/Resolved with Sequelae]
  - Foetal exposure during pregnancy [Recovered/Resolved with Sequelae]
